FAERS Safety Report 17790397 (Version 1)
Quarter: 2020Q2

REPORT INFORMATION
  Report Type: Spontaneous
  Country: US (occurrence: US)
  Receive Date: 20200514
  Receipt Date: 20200514
  Transmission Date: 20200714
  Serious: Yes (Other)
  Sender: FDA-Public Use
  Company Number: US-009507513-2005USA003867

PATIENT
  Age: 50 Year
  Sex: Female

DRUGS (2)
  1. KEYTRUDA [Suspect]
     Active Substance: PEMBROLIZUMAB
     Indication: CHORIOCARCINOMA
  2. KEYTRUDA [Suspect]
     Active Substance: PEMBROLIZUMAB
     Indication: GESTATIONAL TROPHOBLASTIC TUMOUR

REACTIONS (3)
  - Neuropathy peripheral [Unknown]
  - Drug effective for unapproved indication [Unknown]
  - Off label use [Unknown]
